FAERS Safety Report 6130608-7 (Version None)
Quarter: 2009Q1

REPORT INFORMATION
  Report Type: 
  Country: None (occurrence: None)
  Receive Date: 20090325
  Receipt Date: 20090317
  Transmission Date: 20090719
  Serious: Yes (Hospitalization)
  Sender: FDA-Public Use
  Company Number: PHHY2009JP09981

PATIENT
  Sex: Male
  Weight: 76 kg

DRUGS (7)
  1. DIOVAN [Suspect]
     Dosage: 40 MG, QD
     Route: 048
     Dates: start: 20080109
  2. NITOROL [Concomitant]
     Dosage: 40 MG
     Route: 048
     Dates: start: 20050216
  3. MAGNESIUM OXIDE [Concomitant]
     Dosage: 660 MG
     Route: 048
     Dates: start: 20071113
  4. SENNOSIDE [Concomitant]
     Dosage: 24 MG
     Route: 048
     Dates: start: 20050216
  5. HERBESSOR R [Concomitant]
     Dosage: 100 MG
     Route: 048
     Dates: start: 20060418, end: 20080430
  6. CONIEL [Concomitant]
     Dosage: 8 MG
     Route: 048
     Dates: start: 20080501
  7. PLAVIX [Concomitant]
     Dosage: 75 MG
     Route: 048
     Dates: start: 20081231

REACTIONS (4)
  - BRAIN STEM INFARCTION [None]
  - DIZZINESS [None]
  - DYSARTHRIA [None]
  - DYSLALIA [None]
